FAERS Safety Report 11894311 (Version 1)
Quarter: 2016Q1

REPORT INFORMATION
  Report Type: Spontaneous
  Country: FR (occurrence: FR)
  Receive Date: 20160107
  Receipt Date: 20160107
  Transmission Date: 20160526
  Serious: Yes (Death)
  Sender: FDA-Public Use
  Company Number: FR-ROCHE-1689506

PATIENT
  Age: 81 Year
  Sex: Male

DRUGS (14)
  1. CITALOPRAM [Suspect]
     Active Substance: CITALOPRAM HYDROBROMIDE
     Indication: PRODUCT USED FOR UNKNOWN INDICATION
     Route: 048
     Dates: start: 201406, end: 20151013
  2. ROCEPHINE [Suspect]
     Active Substance: CEFTRIAXONE SODIUM
     Route: 042
     Dates: start: 20150908, end: 20151013
  3. TAZOCILLINE [Concomitant]
     Active Substance: PIPERACILLIN SODIUM\TAZOBACTAM SODIUM
     Route: 065
  4. SOLU-MEDROL [Concomitant]
     Active Substance: METHYLPREDNISOLONE SODIUM SUCCINATE
     Route: 065
  5. PREVISCAN (FRANCE) [Suspect]
     Active Substance: FLUINDIONE
     Indication: PRODUCT USED FOR UNKNOWN INDICATION
     Dosage: ALTERNATING 0.5 DF/DAY DAY 1; 0.75 DF DAY 2
     Route: 048
     Dates: end: 20151015
  6. LATANOPROST. [Suspect]
     Active Substance: LATANOPROST
     Indication: PRODUCT USED FOR UNKNOWN INDICATION
     Route: 047
     Dates: start: 201502, end: 20151013
  7. PREDNISONE. [Suspect]
     Active Substance: PREDNISONE
     Dosage: 60 MG
     Route: 048
     Dates: start: 20151026
  8. PANTOPRAZOLE [Suspect]
     Active Substance: PANTOPRAZOLE SODIUM
     Indication: PRODUCT USED FOR UNKNOWN INDICATION
     Dosage: 20 MG
     Route: 048
     Dates: start: 2013, end: 20151012
  9. DESLORATADINE. [Concomitant]
     Active Substance: DESLORATADINE
  10. ROCEPHINE [Suspect]
     Active Substance: CEFTRIAXONE SODIUM
     Indication: LYME DISEASE
     Route: 065
     Dates: start: 201505, end: 201506
  11. AZITHROMYCINE [Suspect]
     Active Substance: AZITHROMYCIN DIHYDRATE
     Indication: PRODUCT USED FOR UNKNOWN INDICATION
     Route: 048
     Dates: start: 20150909, end: 20151005
  12. PREDNISONE. [Suspect]
     Active Substance: PREDNISONE
     Indication: PRODUCT USED FOR UNKNOWN INDICATION
     Dosage: 20 MG
     Route: 048
     Dates: end: 20151013
  13. CITALOPRAM [Suspect]
     Active Substance: CITALOPRAM HYDROBROMIDE
     Route: 048
     Dates: start: 20151028
  14. TAMSULOSINE [Suspect]
     Active Substance: TAMSULOSIN HYDROCHLORIDE
     Indication: PRODUCT USED FOR UNKNOWN INDICATION
     Dosage: 0.4 MG
     Route: 048
     Dates: end: 20151012

REACTIONS (4)
  - Thrombocytopenia [Fatal]
  - Acute kidney injury [Fatal]
  - Agranulocytosis [Fatal]
  - Rash maculo-papular [Fatal]

NARRATIVE: CASE EVENT DATE: 20151005
